FAERS Safety Report 13347059 (Version 3)
Quarter: 2017Q2

REPORT INFORMATION
  Report Type: Spontaneous
  Country: US (occurrence: US)
  Receive Date: 20170317
  Receipt Date: 20170515
  Transmission Date: 20170830
  Serious: Yes (Other)
  Sender: FDA-Public Use
  Company Number: US-BAYER-2017-049778

PATIENT
  Age: 30 Year
  Sex: Female
  Weight: 123.8 kg

DRUGS (1)
  1. MIRENA [Suspect]
     Active Substance: LEVONORGESTREL
     Dosage: 20 MCG/24HR, CONT
     Route: 015
     Dates: start: 20120322, end: 20170309

REACTIONS (3)
  - Complication of device removal [Recovered/Resolved]
  - Pelvic pain [None]
  - Device breakage [Recovered/Resolved]

NARRATIVE: CASE EVENT DATE: 20170309
